FAERS Safety Report 22310350 (Version 2)
Quarter: 2023Q2

REPORT INFORMATION
  Report Type: Spontaneous
  Country: US (occurrence: US)
  Receive Date: 20230511
  Receipt Date: 20230525
  Transmission Date: 20230722
  Serious: Yes (Life-Threatening, Hospitalization)
  Sender: FDA-Public Use
  Company Number: US-TEVA-2023-US-2884600

PATIENT
  Age: 28 Year
  Sex: Female

DRUGS (8)
  1. DILTIAZEM [Suspect]
     Active Substance: DILTIAZEM
     Indication: Ventricular tachycardia
     Route: 065
  2. SOTALOL [Suspect]
     Active Substance: SOTALOL
     Indication: Ventricular tachycardia
     Route: 065
  3. MEXILETINE [Suspect]
     Active Substance: MEXILETINE
     Indication: Ventricular tachycardia
     Route: 065
  4. AMIODARONE [Suspect]
     Active Substance: AMIODARONE
     Indication: Ventricular tachycardia
     Route: 065
  5. QUINIDINE [Suspect]
     Active Substance: QUINIDINE
     Indication: Arrhythmic storm
     Route: 065
  6. QUINIDINE [Suspect]
     Active Substance: QUINIDINE
     Indication: Ventricular tachycardia
  7. FLECAINIDE [Suspect]
     Active Substance: FLECAINIDE
     Indication: Ventricular tachycardia
     Route: 065
  8. DOFETILIDE [Suspect]
     Active Substance: DOFETILIDE
     Indication: Ventricular tachycardia
     Route: 065

REACTIONS (3)
  - Gastrointestinal disorder [Unknown]
  - Drug ineffective [Unknown]
  - Off label use [Unknown]
